FAERS Safety Report 8376524-1 (Version None)
Quarter: 2012Q2

REPORT INFORMATION
  Report Type: 
  Country: None (occurrence: None)
  Receive Date: 20120518
  Receipt Date: 20120508
  Transmission Date: 20120825
  Serious: Yes (Other)
  Sender: FDA-Public Use
  Company Number: ADR-2012-00305

PATIENT
  Sex: Female

DRUGS (2)
  1. LIORESAL [Suspect]
     Indication: MUSCLE SPASTICITY
  2. LIORESAL [Suspect]
     Indication: CEREBRAL PALSY

REACTIONS (10)
  - MUSCLE SPASTICITY [None]
  - DEVICE LEAKAGE [None]
  - DEVICE MALFUNCTION [None]
  - WITHDRAWAL SYNDROME [None]
  - RHABDOMYOLYSIS [None]
  - COMA [None]
  - DEVICE CONNECTION ISSUE [None]
  - DYSTONIA [None]
  - DEVICE DAMAGE [None]
  - OVERDOSE [None]
